FAERS Safety Report 22398951 (Version 1)
Quarter: 2023Q2

REPORT INFORMATION
  Report Type: Spontaneous
  Country: GB (occurrence: GB)
  Receive Date: 20230602
  Receipt Date: 20230602
  Transmission Date: 20230722
  Serious: Yes (Other)
  Sender: FDA-Public Use
  Company Number: None

PATIENT

DRUGS (14)
  1. ARIPIPRAZOLE [Suspect]
     Active Substance: ARIPIPRAZOLE
     Indication: Product used for unknown indication
     Dosage: 15 MG OD, ONE TO BE TAKEN EACH DAY ONCE
  2. ATORVASTATIN [Concomitant]
     Active Substance: ATORVASTATIN
     Dosage: ONE TO BE TAKEN EACH DAY
  3. CETIRIZINE [Concomitant]
     Active Substance: CETIRIZINE HYDROCHLORIDE
     Dosage: TWO TO BE TAKEN DAILY
  4. ESOMEPRAZOLE [Concomitant]
     Active Substance: ESOMEPRAZOLE
     Dosage: ONE TO BE TAKEN EACH DAY
  5. HYDROXOCOBALAMIN [Concomitant]
     Active Substance: HYDROXOCOBALAMIN
     Dosage: 1MG/1ML AMPOULES 1 AMP, EVERY 3 MONTHS 2 AMPOULE
     Route: 030
  6. MELATONIN [Concomitant]
     Active Substance: MELATONIN
  7. MEBEVERINE [Concomitant]
     Active Substance: MEBEVERINE
     Dosage: ONE TO BE TAKEN THREE TIMES A DAY TWENTY MINUTES BEFORE FOOD-TAKES 1 BD
  8. PREGABALIN [Concomitant]
     Active Substance: PREGABALIN
     Dosage: ONE TO BE TAKEN TWICE A DAY
  9. ROPINIROLE [Concomitant]
     Active Substance: ROPINIROLE
     Dosage: 1 TAB NOCTE
  10. ALBUTEROL [Concomitant]
     Active Substance: ALBUTEROL
     Dosage: 100 MICROGRAMS/DOSE DRY POWDER INHALER TAKE ONE OR TWO PUFFS WHEN NEEDED
  11. TADALAFIL [Concomitant]
     Active Substance: TADALAFIL
     Dosage: ONE TO BE TAKEN EACH DAY
  12. TIOTROPIUM [Concomitant]
     Active Substance: TIOTROPIUM
     Dosage: 2.5 MICROGRAMS/DOSE SOLUTION FOR INHALATION CARTRIDGE WITH DEVICE
  13. TRAMADOL [Concomitant]
     Active Substance: TRAMADOL
     Dosage: ONE TO BE TAKEN TWICE A DAY?56 TABLET - NOT TAKING ANYMORE
  14. VENLAFAXINE [Concomitant]
     Active Substance: VENLAFAXINE HYDROCHLORIDE
     Dosage: MODIFIED-RELEASE CAPSULES ONE TO BE TAKEN EACH DAY 30-SEP-2022

REACTIONS (1)
  - Ileus [Unknown]
